FAERS Safety Report 15282208 (Version 1)
Quarter: 2018Q3

REPORT INFORMATION
  Report Type: Spontaneous
  Country: US (occurrence: US)
  Receive Date: 20180815
  Receipt Date: 20180815
  Transmission Date: 20181010
  Serious: No
  Sender: FDA-Public Use
  Company Number: US-CELGENEUS-USA-20180803398

PATIENT
  Sex: Male

DRUGS (2)
  1. OTEZLA [Suspect]
     Active Substance: APREMILAST
     Indication: PSORIASIS
     Dosage: 60 MILLIGRAM
     Route: 048
     Dates: start: 20160831
  2. OTEZLA [Suspect]
     Active Substance: APREMILAST
     Dosage: TITRATION PACK
     Route: 048

REACTIONS (2)
  - Psoriasis [Not Recovered/Not Resolved]
  - Drug dose omission [Unknown]
